FAERS Safety Report 8913078 (Version 2)
Quarter: 2013Q1

REPORT INFORMATION
  Report Type: Spontaneous
  Country: GR (occurrence: None)
  Receive Date: 20121113
  Receipt Date: 20121219
  Transmission Date: 20140127
  Serious: Yes (Other)
  Sender: FDA-Public Use
  Company Number: GR-1194633

PATIENT
  Age: 89 Year
  Sex: Female
  Weight: 60 kg

DRUGS (2)
  1. VIGAMOX [Suspect]
     Indication: ENDOPHTHALMITIS
     Route: 047
     Dates: start: 20110404, end: 20120918
  2. TEARS NATURALE [Concomitant]

REACTIONS (4)
  - Hypopyon [None]
  - Eye infection staphylococcal [None]
  - Off label use [None]
  - Vision blurred [None]
